FAERS Safety Report 10023084 (Version 1)
Quarter: 2014Q1

REPORT INFORMATION
  Report Type: Spontaneous
  Country: US (occurrence: US)
  Receive Date: 20140319
  Receipt Date: 20140319
  Transmission Date: 20141002
  Serious: Yes (Other)
  Sender: FDA-Public Use
  Company Number: US-AMGEN-USASP2014019191

PATIENT
  Age: 68 Year
  Sex: Female
  Weight: 71.66 kg

DRUGS (18)
  1. ENBREL [Suspect]
     Indication: PRODUCT USED FOR UNKNOWN INDICATION
     Dosage: 50 MG, QWK
     Route: 058
  2. SOMA [Concomitant]
     Dosage: 350 MG, UNK
  3. NITROSTAT [Concomitant]
     Dosage: 0.3 MG, UNK
  4. ARAVA [Concomitant]
     Dosage: 10 MG, UNK
  5. OXAPROZIN [Concomitant]
     Dosage: 600 MG, UNK
  6. GABAPENTIN [Concomitant]
     Dosage: 100 MG, UNK
  7. VITAMIN C                          /00008001/ [Concomitant]
     Dosage: 500 MG, UNK
  8. LEVOTHYROXIN [Concomitant]
     Dosage: 50 MUG, UNK
  9. CRESTOR [Concomitant]
     Dosage: 10 MG, UNK
  10. METOPROLOL TARTRATE [Concomitant]
     Dosage: 25 MG, UNK
  11. CALCIUM [Concomitant]
     Dosage: 600 MG, UNK
  12. OMEGA 3                            /01333901/ [Concomitant]
     Dosage: 1200 MG, UNK
  13. COENZYME Q10 [Concomitant]
     Dosage: 100 MG, UNK
  14. ASPIRIN [Concomitant]
     Dosage: 81 MG, UNK
  15. VITAMIN B12                        /00056201/ [Concomitant]
     Dosage: 500 MUG, UNK
  16. VITAMIN D3 [Concomitant]
     Dosage: 5000 UNIT, UNK
  17. GELNIQUE [Concomitant]
     Dosage: 10 %, UNK
  18. HYDROCHLOROTHIAZIDE W/TRIAMTERENE [Concomitant]
     Dosage: UNK, 25-50 MG

REACTIONS (3)
  - Rheumatoid arthritis [Unknown]
  - Arthralgia [Unknown]
  - Joint stiffness [Unknown]
